FAERS Safety Report 22843889 (Version 9)
Quarter: 2025Q4

REPORT INFORMATION
  Report Type: Spontaneous
  Country: CH (occurrence: CH)
  Receive Date: 20230821
  Receipt Date: 20251031
  Transmission Date: 20260118
  Serious: Yes (Life-Threatening, Hospitalization, Other)
  Sender: MYLAN
  Company Number: CH-MYLANLABS-2023M1085072

PATIENT
  Age: 86 Year
  Sex: Male

DRUGS (12)
  1. XANAX [Suspect]
     Active Substance: ALPRAZOLAM
     Indication: Fear
     Dosage: 0.25 MILLIGRAM, TID (2 TABS IN THE MORNING AND 1 TAB IN THE EVENING)
     Dates: start: 20230713
  2. XANAX [Suspect]
     Active Substance: ALPRAZOLAM
     Indication: Anxiety
     Dosage: 1.2 MILLIGRAM, BID (IN THE MORNING AND IN THE EVENING)
  3. SERTRALINE [Suspect]
     Active Substance: SERTRALINE HYDROCHLORIDE
     Indication: Product used for unknown indication
     Dosage: UNK
  4. SERTRALINE [Suspect]
     Active Substance: SERTRALINE HYDROCHLORIDE
     Indication: Product used for unknown indication
     Dosage: UNK
  5. OXAZEPAM [Suspect]
     Active Substance: OXAZEPAM
     Indication: Sleep disorder
     Dosage: UNK, BID (1 TABLET IN THE MORNINGS AND 1.5 IN THE EVENINGS)
  6. LORAZEPAM [Suspect]
     Active Substance: LORAZEPAM
     Indication: Depression
     Dosage: 1 MILLIGRAM, QD
     Dates: start: 2017
  7. LORAZEPAM [Suspect]
     Active Substance: LORAZEPAM
     Indication: Anxiety
     Dosage: 1 MILLIGRAM, QD
     Dates: start: 2017
  8. LORAZEPAM [Suspect]
     Active Substance: LORAZEPAM
     Indication: Depression
     Dosage: 1 MILLIGRAM, QD
     Dates: start: 2021, end: 2023
  9. LORAZEPAM [Suspect]
     Active Substance: LORAZEPAM
     Indication: Anxiety
     Dosage: 1 MILLIGRAM, QD
     Dates: start: 2021, end: 2023
  10. QUETIAPINE [Suspect]
     Active Substance: QUETIAPINE
     Indication: Product used for unknown indication
     Dosage: UNK
  11. QUETIAPINE [Suspect]
     Active Substance: QUETIAPINE
     Indication: Product used for unknown indication
     Dosage: UNK
  12. MELATONIN [Concomitant]
     Active Substance: MELATONIN
     Indication: Sleep disorder
     Dosage: UNK

REACTIONS (19)
  - Cerebrovascular accident [Unknown]
  - Cerebral disorder [Unknown]
  - Insomnia [Not Recovered/Not Resolved]
  - Somnolence [Not Recovered/Not Resolved]
  - Irritable bowel syndrome [Not Recovered/Not Resolved]
  - Pain in extremity [Not Recovered/Not Resolved]
  - Condition aggravated [Not Recovered/Not Resolved]
  - Malaise [Unknown]
  - Anxiety [Unknown]
  - Depression [Unknown]
  - Vision blurred [Not Recovered/Not Resolved]
  - Hyperaesthesia [Unknown]
  - Pain [Unknown]
  - Depressed mood [Unknown]
  - Intentional underdose [Unknown]
  - Intentional dose omission [Unknown]
  - Wrong technique in product usage process [Unknown]
  - Product use complaint [Unknown]
  - Contraindicated product administered [Unknown]

NARRATIVE: CASE EVENT DATE: 20230901
